FAERS Safety Report 9319917 (Version 1)
Quarter: 2013Q2

REPORT INFORMATION
  Report Type: Other
  Country: CH (occurrence: CH)
  Receive Date: 20130530
  Receipt Date: 20130530
  Transmission Date: 20140414
  Serious: Yes (Hospitalization)
  Sender: FDA-Public Use
  Company Number: CH-BRISTOL-MYERS SQUIBB COMPANY-18923029

PATIENT
  Age: 58 Year
  Sex: Female

DRUGS (3)
  1. ETOPOSIDE [Suspect]
     Indication: LUNG CANCER METASTATIC
  2. CISPLATIN [Suspect]
     Indication: LUNG CANCER METASTATIC
  3. LETROZOLE [Suspect]
     Indication: BREAST CANCER

REACTIONS (1)
  - Cerebrovascular accident [Recovering/Resolving]
